FAERS Safety Report 9285390 (Version 4)
Quarter: 2014Q1

REPORT INFORMATION
  Report Type: Spontaneous
  Country: US (occurrence: US)
  Receive Date: 20130513
  Receipt Date: 20140116
  Transmission Date: 20141002
  Serious: Yes (Other)
  Sender: FDA-Public Use
  Company Number: US-PFIZER INC-2013142424

PATIENT
  Age: 56 Year
  Sex: Female
  Weight: 68.93 kg

DRUGS (7)
  1. LEVOXYL [Suspect]
     Indication: HYPOTHYROIDISM
     Dosage: 100 UG, 1X/DAY
     Route: 048
  2. LEVOXYL [Suspect]
     Indication: HYPOTHYROIDISM
     Dosage: 88 UG, 1X/DAY
     Route: 048
  3. LEVOXYL [Suspect]
     Dosage: 75 UG, 1X/DAY
     Route: 048
  4. LEVOXYL [Suspect]
     Dosage: TO 50MCG ONCE DAILY AND 75MCG ONCE A DAY FOR THE REMAINING DAYS OF THE WEEK
     Route: 048
     Dates: start: 2013
  5. NEXIUM [Concomitant]
     Indication: GASTROOESOPHAGEAL REFLUX DISEASE
     Dosage: 40 MG, 1X/DAY
  6. ALLEGRA [Concomitant]
     Dosage: 40 MG, DAILY
  7. ZOLOFT [Concomitant]
     Dosage: 12.5 MG, UNK

REACTIONS (4)
  - Sinusitis [Unknown]
  - Blood thyroid stimulating hormone decreased [Unknown]
  - Thyroid function test abnormal [Recovered/Resolved]
  - Blood pressure decreased [Unknown]
